FAERS Safety Report 8157258-5 (Version None)
Quarter: 2012Q1

REPORT INFORMATION
  Report Type: 
  Country: None (occurrence: None)
  Receive Date: 20120222
  Receipt Date: 20120216
  Transmission Date: 20120608
  Serious: Yes (Other)
  Sender: FDA-Public Use
  Company Number: US-PERRIGO-11US001473

PATIENT
  Sex: Female
  Weight: 104.31 kg

DRUGS (2)
  1. PHENYLEPHRINE HCL [Suspect]
     Indication: COUGH
  2. PHENYLEPHRINE HCL [Suspect]
     Indication: NASAL CONGESTION
     Dosage: 10 MG, EVERY 4 HOURS
     Route: 048
     Dates: start: 20110221

REACTIONS (2)
  - ABORTION SPONTANEOUS [None]
  - MATERNAL EXPOSURE DURING PREGNANCY [None]
